FAERS Safety Report 24706296 (Version 1)
Quarter: 2024Q4

REPORT INFORMATION
  Report Type: Report from Study
  Country: CO (occurrence: CO)
  Receive Date: 20241206
  Receipt Date: 20241206
  Transmission Date: 20250114
  Serious: Yes (Hospitalization)
  Sender: RECORDATI
  Company Number: CO-RECORDATI RARE DISEASE INC.-2024009453

PATIENT

DRUGS (2)
  1. PANHEMATIN [Suspect]
     Active Substance: HEMIN
     Indication: Porphyria acute
     Dosage: 1050 MG (3X 350MG), QM
     Route: 042
     Dates: start: 20210130
  2. PANHEMATIN [Suspect]
     Active Substance: HEMIN
     Dosage: VIALS (STRENGTH: 350 MG), 3 CYCLES
     Route: 042
     Dates: start: 20241125

REACTIONS (2)
  - Vomiting [Not Recovered/Not Resolved]
  - Off label use [Recovered/Resolved]

NARRATIVE: CASE EVENT DATE: 20210130
